FAERS Safety Report 6121107-7 (Version None)
Quarter: 2009Q1

REPORT INFORMATION
  Report Type: 
  Country: None (occurrence: None)
  Receive Date: 20090317
  Receipt Date: 20090310
  Transmission Date: 20090719
  Serious: Yes (Hospitalization)
  Sender: FDA-Public Use
  Company Number: A0733411A

PATIENT
  Age: 61 Year
  Sex: Male
  Weight: 103.2 kg

DRUGS (9)
  1. ADVAIR HFA [Suspect]
     Indication: CHRONIC OBSTRUCTIVE PULMONARY DISEASE
     Dosage: 1PUFF TWICE PER DAY
     Route: 055
     Dates: start: 20010101
  2. SYMBICORT [Suspect]
  3. SPIRIVA [Concomitant]
  4. XOPENEX [Concomitant]
  5. OMEPRAZOLE [Concomitant]
  6. TERAZOSIN HCL [Concomitant]
  7. FLUTICASONE PROPIONATE [Concomitant]
  8. MULTI-VITAMIN [Concomitant]
  9. FORADIL [Concomitant]

REACTIONS (16)
  - CHRONIC OBSTRUCTIVE PULMONARY DISEASE [None]
  - DYSPNOEA [None]
  - FEELING ABNORMAL [None]
  - HYPERSENSITIVITY [None]
  - HYPOAESTHESIA ORAL [None]
  - LUNG INFECTION [None]
  - MALAISE [None]
  - MUCOSAL DISCOLOURATION [None]
  - NON-CARDIAC CHEST PAIN [None]
  - PARAESTHESIA [None]
  - PARAESTHESIA ORAL [None]
  - PHARYNGEAL OEDEMA [None]
  - PRODUCT QUALITY ISSUE [None]
  - PRODUCTIVE COUGH [None]
  - RASH MACULAR [None]
  - RESPIRATORY GAS EXCHANGE DISORDER [None]
